FAERS Safety Report 6827622-2 (Version None)
Quarter: 2010Q3

REPORT INFORMATION
  Report Type: 
  Country: None (occurrence: None)
  Receive Date: 20100709
  Receipt Date: 20070118
  Transmission Date: 20110219
  Serious: No
  Sender: FDA-Public Use
  Company Number: US-PFIZER INC-2007005917

PATIENT
  Sex: Male

DRUGS (1)
  1. CHANTIX [Suspect]
     Dates: start: 20061201, end: 20070116

REACTIONS (4)
  - ABNORMAL DREAMS [None]
  - ADVERSE EVENT [None]
  - INSOMNIA [None]
  - IRRITABILITY [None]
